FAERS Safety Report 12328485 (Version 1)
Quarter: 2016Q2

REPORT INFORMATION
  Report Type: Spontaneous
  Country: US (occurrence: US)
  Receive Date: 20160503
  Receipt Date: 20160503
  Transmission Date: 20160815
  Serious: No
  Sender: FDA-Public Use
  Company Number: US-BEH-2015048378

PATIENT
  Sex: Female
  Weight: 57 kg

DRUGS (22)
  1. HIZENTRA [Suspect]
     Active Substance: HUMAN IMMUNOGLOBULIN G
     Indication: IMMUNODEFICIENCY COMMON VARIABLE
     Dosage: 4 GM 20 ML VIAL
     Route: 058
  2. FORTEO [Concomitant]
     Active Substance: TERIPARATIDE
  3. PREDNISONE. [Concomitant]
     Active Substance: PREDNISONE
  4. GLIPIZIDE. [Concomitant]
     Active Substance: GLIPIZIDE
  5. PREVACID [Concomitant]
     Active Substance: LANSOPRAZOLE
  6. SODIUM CHLORIDE. [Concomitant]
     Active Substance: SODIUM CHLORIDE
  7. LEVOTHYROXINE. [Concomitant]
     Active Substance: LEVOTHYROXINE
  8. DIPHENHYDRAMINE. [Concomitant]
     Active Substance: DIPHENHYDRAMINE
  9. LIDOCAINE/ PRILOCAINE [Concomitant]
  10. EPIPEN [Concomitant]
     Active Substance: EPINEPHRINE
  11. NASONEX [Concomitant]
     Active Substance: MOMETASONE FUROATE
  12. PENTOXIFYLLINE. [Concomitant]
     Active Substance: PENTOXIFYLLINE
  13. LIDOCAINE 4% [Concomitant]
     Active Substance: LIDOCAINE
  14. HYDROCHLOROTHIAZIDE. [Concomitant]
     Active Substance: HYDROCHLOROTHIAZIDE
  15. PROAIR HFA [Concomitant]
     Active Substance: ALBUTEROL SULFATE
  16. SINGULAIR [Concomitant]
     Active Substance: MONTELUKAST SODIUM
  17. LIPITOR [Concomitant]
     Active Substance: ATORVASTATIN CALCIUM
  18. GABAPENTIN. [Concomitant]
     Active Substance: GABAPENTIN
  19. ALBUTEROL. [Concomitant]
     Active Substance: ALBUTEROL
  20. MUCINEX [Concomitant]
     Active Substance: GUAIFENESIN
  21. ACETAMINOPHEN. [Concomitant]
     Active Substance: ACETAMINOPHEN
  22. SYMBICORT [Concomitant]
     Active Substance: BUDESONIDE\FORMOTEROL FUMARATE DIHYDRATE

REACTIONS (1)
  - Fatigue [Unknown]
